FAERS Safety Report 15962510 (Version 3)
Quarter: 2019Q1

REPORT INFORMATION
  Report Type: Spontaneous
  Country: JP (occurrence: JP)
  Receive Date: 20190214
  Receipt Date: 20190306
  Transmission Date: 20190417
  Serious: Yes (Other)
  Sender: FDA-Public Use
  Company Number: IND-JP-009507513-1902JPN000551J

PATIENT
  Age: 80 Year
  Sex: Female
  Weight: 37 kg

DRUGS (15)
  1. ESLAX INTRAVENOUS 25MG/2.5ML [Suspect]
     Active Substance: ROCURONIUM BROMIDE
     Indication: NEUROMUSCULAR BLOCKING THERAPY
     Dosage: 30 MILLIGRAM
     Route: 042
  2. FENTANYL. [Suspect]
     Active Substance: FENTANYL
     Indication: ANALGESIC THERAPY
     Dosage: 0.2 MILLIGRAM
     Route: 065
  3. ACETAMINOPHEN. [Concomitant]
     Active Substance: ACETAMINOPHEN
     Indication: ANALGESIC THERAPY
     Dosage: 1000 MILLIGRAM
     Route: 065
  4. PROPOFOL. [Suspect]
     Active Substance: PROPOFOL
     Indication: INDUCTION OF ANAESTHESIA
     Dosage: 50 MILLIGRAM
     Route: 065
  5. PROPOFOL. [Suspect]
     Active Substance: PROPOFOL
     Dosage: 50 MG/HR
     Route: 065
  6. FENTANYL. [Suspect]
     Active Substance: FENTANYL
     Dosage: 25?G/HR
     Route: 065
  7. ESLAX INTRAVENOUS 25MG/2.5ML [Suspect]
     Active Substance: ROCURONIUM BROMIDE
     Dosage: 50 MILLIGRAM
     Route: 042
  8. PROPOFOL. [Suspect]
     Active Substance: PROPOFOL
     Dosage: 70 MILLIGRAM
     Route: 065
  9. REMIFENTANIL HYDROCHLORIDE. [Suspect]
     Active Substance: REMIFENTANIL HYDROCHLORIDE
     Dosage: 0.3 MICROGRAM/KG/MIN
     Route: 051
  10. SEVOFLURANE. [Suspect]
     Active Substance: SEVOFLURANE
     Dosage: 1.5 PERCENT
     Route: 065
  11. ESLAX INTRAVENOUS 25MG/2.5ML [Suspect]
     Active Substance: ROCURONIUM BROMIDE
     Dosage: 50 MILLIGRAM
     Route: 042
  12. REMIFENTANIL HYDROCHLORIDE. [Suspect]
     Active Substance: REMIFENTANIL HYDROCHLORIDE
     Indication: INDUCTION OF ANAESTHESIA
     Dosage: 0.2 MICROGRAM/KG/MIN
     Route: 065
  13. ATROPINE. [Concomitant]
     Active Substance: ATROPINE
     Dosage: 0.5 MILLIGRAM
     Route: 065
  14. FLURBIPROFEN AXETIL [Concomitant]
     Active Substance: FLURBIPROFEN AXETIL
     Indication: ANALGESIC THERAPY
     Dosage: 50 MILLIGRAM
     Route: 065
  15. NEOSTIGMINE METHYLSULFATE. [Concomitant]
     Active Substance: NEOSTIGMINE METHYLSULFATE
     Dosage: 1 MILLIGRAM
     Route: 065

REACTIONS (4)
  - Recurrence of neuromuscular blockade [Recovered/Resolved]
  - Hypoventilation [Recovered/Resolved]
  - Respiratory failure [Recovered/Resolved]
  - Glossoptosis [Recovered/Resolved]
